FAERS Safety Report 9307055 (Version 2)
Quarter: 2013Q4

REPORT INFORMATION
  Report Type: Spontaneous
  Country: US (occurrence: US)
  Receive Date: 20130523
  Receipt Date: 20131115
  Transmission Date: 20140711
  Serious: Yes (Hospitalization)
  Sender: FDA-Public Use
  Company Number: US-B.I. PHARMACEUTICALS,INC./RIDGEFIELD-2013-BI-14416BP

PATIENT
  Sex: Male
  Weight: 63.5 kg

DRUGS (8)
  1. PRADAXA [Suspect]
     Indication: ANTICOAGULANT THERAPY
     Dosage: 300 MG
     Route: 048
     Dates: start: 20120730, end: 20120813
  2. PRADAXA [Suspect]
     Indication: ATRIAL FIBRILLATION
  3. LISINOPRIL [Concomitant]
     Dosage: 20 MG
  4. ATORVASTATIN [Concomitant]
     Dosage: 40 MG
     Route: 048
  5. FISH OIL [Concomitant]
     Route: 048
  6. VITAMIN D [Concomitant]
     Route: 048
  7. ASPIRIN [Concomitant]
     Dosage: 81 MG
     Route: 048
  8. MULTAQ [Concomitant]
     Dosage: 800 MG

REACTIONS (6)
  - Gastrointestinal haemorrhage [Unknown]
  - Coagulopathy [Unknown]
  - Gastritis erosive [Unknown]
  - Haemorrhagic anaemia [Unknown]
  - Haemorrhage [Unknown]
  - Increased tendency to bruise [Unknown]
